FAERS Safety Report 9148289 (Version 1)
Quarter: 2013Q1

REPORT INFORMATION
  Report Type: Spontaneous
  Country: US (occurrence: None)
  Receive Date: 20130215
  Receipt Date: 20130215
  Transmission Date: 20140127
  Serious: Yes (Other)
  Sender: FDA-Public Use
  Company Number: 1302-213

PATIENT
  Age: 75 Year
  Sex: Female
  Weight: 56.7 kg

DRUGS (4)
  1. EYLEA (AFLIBERCEPT) (INJECTION) (AFLIBERCEPT) [Suspect]
     Indication: AGE-RELATED MACULAR DEGENERATION
     Dosage: INTRAVITREAL
     Dates: start: 201204
  2. MULTIVITAMIN (VIGRAN) [Concomitant]
  3. BETA-CAROTENE SUPPLEMENTS (BETACAROTENE) [Concomitant]
  4. LUTEIN (XANTOFYL) [Concomitant]

REACTIONS (3)
  - Headache [None]
  - Polymyalgia rheumatica [None]
  - Red blood cell sedimentation rate increased [None]
